FAERS Safety Report 22256589 (Version 3)
Quarter: 2023Q2

REPORT INFORMATION
  Report Type: Report from Study
  Country: US (occurrence: US)
  Receive Date: 20230426
  Receipt Date: 20230623
  Transmission Date: 20230722
  Serious: Yes (Hospitalization)
  Sender: FDA-Public Use
  Company Number: US-BoehringerIngelheim-2023-BI-233635

PATIENT
  Age: 67 Year
  Sex: Female

DRUGS (2)
  1. OFEV [Suspect]
     Active Substance: NINTEDANIB
     Indication: Idiopathic pulmonary fibrosis
     Route: 048
     Dates: start: 20230412, end: 202304
  2. OFEV [Suspect]
     Active Substance: NINTEDANIB
     Route: 048
     Dates: start: 20230416, end: 2023

REACTIONS (3)
  - Post procedural haematoma [Not Recovered/Not Resolved]
  - Haemorrhage [Unknown]
  - Spinal fusion surgery [Unknown]

NARRATIVE: CASE EVENT DATE: 20230401
